FAERS Safety Report 23271531 (Version 1)
Quarter: 2023Q4

REPORT INFORMATION
  Report Type: Spontaneous
  Country: GB (occurrence: GB)
  Receive Date: 20231207
  Receipt Date: 20231207
  Transmission Date: 20240109
  Serious: Yes (Life-Threatening, Other)
  Sender: FDA-Public Use
  Company Number: None

PATIENT
  Age: 80 Year
  Sex: Female

DRUGS (8)
  1. DALTEPARIN SODIUM [Suspect]
     Active Substance: DALTEPARIN SODIUM
     Dosage: 5000 UNITS AT TEATIME
  2. CALCIUM CARBONATE\CHOLECALCIFEROL [Concomitant]
     Active Substance: CALCIUM CARBONATE\CHOLECALCIFEROL
     Dosage: 1 DF, 2X/DAY
  3. ACETAMINOPHEN [Concomitant]
     Active Substance: ACETAMINOPHEN
     Dosage: ONE OR TWO TO BE TAKEN EVERY 4-6 HOURS UP TO FOURTIMES A DAY
  4. HYPROMELLOSES [Concomitant]
     Active Substance: HYPROMELLOSES
     Dosage: TO BE USED WHEN REQUIRED
  5. IBUPROFEN [Concomitant]
     Active Substance: IBUPROFEN
     Dosage: PRN - PT STATES DOESN^T TAKE THAT OFTEN AS IT UPSETS HER STOMACH
  6. ATORVASTATIN [Concomitant]
     Active Substance: ATORVASTATIN
     Dosage: EVENING
  7. ALENDRONIC ACID [Concomitant]
     Active Substance: ALENDRONIC ACID
     Dosage: ONE TO BE TAKEN ON THE SAME DAY EACH WEEK
  8. RAMIPRIL [Concomitant]
     Active Substance: RAMIPRIL
     Dosage: UNK MG, 1X/DAY

REACTIONS (1)
  - Heparin-induced thrombocytopenia [Unknown]
